FAERS Safety Report 25440159 (Version 1)
Quarter: 2025Q2

REPORT INFORMATION
  Report Type: Spontaneous
  Country: CH (occurrence: CH)
  Receive Date: 20250616
  Receipt Date: 20250616
  Transmission Date: 20250716
  Serious: Yes (Other)
  Sender: GILEAD
  Company Number: CH-GILEAD-2025-0717075

PATIENT
  Sex: Female

DRUGS (1)
  1. TRUVADA [Suspect]
     Active Substance: EMTRICITABINE\TENOFOVIR DISOPROXIL FUMARATE
     Indication: Antiviral prophylaxis
     Route: 065

REACTIONS (3)
  - Osteoporosis [Unknown]
  - Renal failure [Unknown]
  - Product use in unapproved indication [Recovered/Resolved]
